FAERS Safety Report 8961639 (Version 1)
Quarter: 2012Q4

REPORT INFORMATION
  Report Type: 
  Country: AR (occurrence: AR)
  Receive Date: 20121213
  Receipt Date: 20121213
  Transmission Date: 20130627
  Serious: Yes (Life-Threatening, Hospitalization, Other)
  Sender: FDA-Public Use
  Company Number: PHHY2012AR113457

PATIENT
  Sex: Female

DRUGS (3)
  1. DIOVAN [Suspect]
     Indication: BLOOD PRESSURE INCREASED
     Dosage: 160mg daily
     Route: 048
     Dates: start: 201112
  2. DIOVAN [Suspect]
     Dosage: 320 mg, UNK
     Route: 048
  3. TEGRETOL [Suspect]
     Indication: SYNCOPE
     Dosage: 2 DFdaily
     Route: 048
     Dates: start: 201110, end: 201202

REACTIONS (8)
  - Toxicity to various agents [Recovering/Resolving]
  - Blood pressure increased [Recovering/Resolving]
  - Syncope [Recovering/Resolving]
  - Drug intolerance [Recovering/Resolving]
  - Fall [Recovering/Resolving]
  - Abasia [Recovering/Resolving]
  - Memory impairment [Recovering/Resolving]
  - Dizziness [Recovering/Resolving]
